FAERS Safety Report 4555031-8 (Version None)
Quarter: 2005Q1

REPORT INFORMATION
  Report Type: 
  Country: None (occurrence: None)
  Receive Date: 20041228
  Receipt Date: 20040409
  Transmission Date: 20050727
  Serious: Yes (Other)
  Sender: FDA-Public Use
  Company Number: PHEH2004US04074

PATIENT
  Age: 60 Year
  Sex: Female

DRUGS (20)
  1. AREDIA [Suspect]
     Dosage: 90 MG  OVER 1-2 HOURS
     Dates: start: 20010122, end: 20021009
  2. ZOMETA [Suspect]
     Dosage: 3-4MG OVER 15 MINUTES
     Dates: start: 20021106, end: 20030715
  3. CAPECITABINE (CAPECITABINE) [Concomitant]
  4. CYCLOPHOSPHAMIDE [Concomitant]
  5. EPOETIN ALFA (EPOETIN ALFA) [Concomitant]
  6. EXEMESTANE (EXEMESTANE) [Concomitant]
  7. FLUOROURACIL [Concomitant]
  8. FULVESTRANT (FULVESTRANT) [Concomitant]
  9. METHOTREXATE SODIUM [Concomitant]
  10. TAXOL [Concomitant]
  11. VINORELBINE DITARTRATE (VINORELBINE DITARTRATE) [Concomitant]
  12. DEXAMETHASONE SODIUM PHOSPHATE [Concomitant]
  13. DIPHENHYDRAMINE HYDROCHLORIDE [Concomitant]
  14. FILGRASTIM (FILGRASTIM) [Concomitant]
  15. GRANISETRON HYDROCHLORIDE (GRANISETRON HYDROCHLORIDE) [Concomitant]
  16. ONDANSETRON HCL [Concomitant]
  17. PEGFILGRASTIM (PEGFILGRASTIM) [Concomitant]
  18. PROCHLORPERAZINE MALEATE (PROCHLORPERAZINE MALEATE) [Concomitant]
  19. RANITIDINE HYDROCHLORIDE [Concomitant]
  20. DEXAMETHASONE [Concomitant]

REACTIONS (2)
  - OSTEONECROSIS [None]
  - TOOTH EXTRACTION [None]
